FAERS Safety Report 20611520 (Version 3)
Quarter: 2022Q2

REPORT INFORMATION
  Report Type: Report from Study
  Country: CA (occurrence: None)
  Receive Date: 20220318
  Receipt Date: 20220420
  Transmission Date: 20220720
  Serious: No
  Sender: FDA-Public Use
  Company Number: CA-Merck Healthcare KGaA-9306397

PATIENT
  Age: 40 Year
  Sex: Female

DRUGS (2)
  1. MAVENCLAD [Suspect]
     Active Substance: CLADRIBINE
     Indication: Multiple sclerosis
     Dosage: WEEK ONE THERAPY: TWO DOSAGE FORMS ON DAY 1 AND ONE DOSAGE FORM ON DAYS 2 TO 5
     Route: 048
     Dates: start: 20220208
  2. MAVENCLAD [Suspect]
     Active Substance: CLADRIBINE
     Dosage: WEEK FIVE THERAPY: TWO DOSAGE FORMS ON DAY 1 AND ONE DOSAGE FORM ON DAYS 2 TO 5
     Route: 048
     Dates: start: 2022

REACTIONS (4)
  - Erythema [Not Recovered/Not Resolved]
  - Feeling hot [Unknown]
  - Pruritus [Not Recovered/Not Resolved]
  - Asthenia [Unknown]

NARRATIVE: CASE EVENT DATE: 20220101
